FAERS Safety Report 9807432 (Version 7)
Quarter: 2014Q2

REPORT INFORMATION
  Report Type: Spontaneous
  Country: US (occurrence: US)
  Receive Date: 20140110
  Receipt Date: 20140522
  Transmission Date: 20141212
  Serious: Yes (Other)
  Sender: FDA-Public Use
  Company Number: US-PFIZER INC-2014003785

PATIENT
  Age: 51 Year
  Sex: Male
  Weight: 92.52 kg

DRUGS (3)
  1. SUTENT [Suspect]
     Indication: METASTATIC RENAL CELL CARCINOMA
     Dosage: 37.5 MG, ONCE DAILY CYCLIC
     Dates: start: 20131208
  2. OXYCODONE [Concomitant]
     Dosage: UNK
  3. AMLODIPINE [Concomitant]
     Dosage: 5 MG, UNK

REACTIONS (10)
  - Rib fracture [Unknown]
  - Hypertension [Unknown]
  - Fatigue [Not Recovered/Not Resolved]
  - Asthenia [Not Recovered/Not Resolved]
  - Feeling abnormal [Unknown]
  - Nausea [Unknown]
  - Disease progression [Unknown]
  - Metastatic renal cell carcinoma [Unknown]
  - Dyspnoea [Unknown]
  - Renal cyst [Unknown]
